FAERS Safety Report 19371912 (Version 1)
Quarter: 2021Q2

REPORT INFORMATION
  Report Type: Spontaneous
  Country: US (occurrence: US)
  Receive Date: 20210604
  Receipt Date: 20210604
  Transmission Date: 20210717
  Serious: No
  Sender: FDA-Public Use
  Company Number: US-JNJFOC-20210558116

PATIENT
  Age: 83 Year
  Sex: Female
  Weight: 79.45 kg

DRUGS (2)
  1. XARELTO [Suspect]
     Active Substance: RIVAROXABAN
     Indication: ATRIAL FLUTTER
     Route: 048
  2. FISH OIL [Concomitant]
     Active Substance: FISH OIL
     Route: 065

REACTIONS (7)
  - Inflammation [Unknown]
  - Product use in unapproved indication [Unknown]
  - Off label use [Unknown]
  - Fatigue [Unknown]
  - Body height decreased [Unknown]
  - Muscular weakness [Unknown]
  - Urine odour abnormal [Unknown]
